FAERS Safety Report 4884964-8 (Version None)
Quarter: 2006Q1

REPORT INFORMATION
  Report Type: 
  Country: None (occurrence: None)
  Receive Date: 20060119
  Receipt Date: 20060110
  Transmission Date: 20060701
  Serious: Yes (Death)
  Sender: FDA-Public Use
  Company Number: US-JNJFOC-20060102196

PATIENT
  Age: 91 Year
  Sex: Female
  Weight: 45.36 kg

DRUGS (1)
  1. RAZADYNE [Suspect]

REACTIONS (1)
  - CARDIAC FAILURE [None]
